FAERS Safety Report 8769656 (Version 4)
Quarter: 2012Q4

REPORT INFORMATION
  Report Type: 
  Country: IT (occurrence: IT)
  Receive Date: 20120905
  Receipt Date: 20120928
  Transmission Date: 20130627
  Serious: Yes (Hospitalization)
  Sender: FDA-Public Use
  Company Number: IT-PFIZER INC-2012217049

PATIENT
  Age: 22 Year
  Sex: Male

DRUGS (4)
  1. XANAX [Suspect]
     Dosage: 15 mg, single
     Route: 048
     Dates: start: 20120824, end: 20120824
  2. FOLIDEX [Suspect]
     Dosage: 10.8 mg, single
     Route: 048
     Dates: start: 20120824, end: 20120824
  3. PURSENNID [Suspect]
     Dosage: 240 mg, single
     Route: 048
     Dates: start: 20120824, end: 20120824
  4. PROGYNOVA [Suspect]
     Dosage: 42 mg, single
     Route: 048
     Dates: start: 20120824, end: 20120824

REACTIONS (5)
  - Drug abuse [Recovered/Resolved]
  - Alcohol abuse [Recovered/Resolved]
  - Sopor [Recovered/Resolved]
  - Vomiting [Recovered/Resolved]
  - Asthenia [Recovered/Resolved]
